FAERS Safety Report 10052666 (Version 1)
Quarter: 2014Q2

REPORT INFORMATION
  Report Type: Report from Study
  Country: US (occurrence: US)
  Receive Date: 20140402
  Receipt Date: 20140402
  Transmission Date: 20141212
  Serious: Yes (Other)
  Sender: FDA-Public Use
  Company Number: US-EISAI INC-E7389-04916-CLI-US

PATIENT
  Sex: Male
  Weight: 95.7 kg

DRUGS (10)
  1. ERIBULIN [Suspect]
     Indication: METASTATIC CARCINOMA OF THE BLADDER
     Dosage: 1.4 MG/M2
     Route: 042
     Dates: start: 20131204, end: 20131211
  2. FENTANYL [Concomitant]
  3. NORCO [Concomitant]
  4. WARFARIN [Concomitant]
  5. VITAMIN D [Concomitant]
  6. DOCUSATE [Concomitant]
  7. SENNA [Concomitant]
  8. MORPHINE [Concomitant]
  9. LORAZEPAM [Concomitant]
  10. SCOPOLAMINE [Concomitant]

REACTIONS (1)
  - Hypophosphataemia [Recovered/Resolved]
